FAERS Safety Report 9512492 (Version 1)
Quarter: 2013Q3

REPORT INFORMATION
  Report Type: Spontaneous
  Country: US (occurrence: US)
  Receive Date: 20130910
  Receipt Date: 20130910
  Transmission Date: 20140515
  Serious: Yes (Other)
  Sender: FDA-Public Use
  Company Number: US-PFIZER INC-2013256231

PATIENT
  Age: 73 Year
  Sex: Female
  Weight: 59 kg

DRUGS (4)
  1. SUTENT [Suspect]
     Indication: PANCREATIC CARCINOMA
     Dosage: 37.5 MG, CYCLIC (ONCE A DAY DAILY, 4 WEEKS ON AND 2 WEEKS OFF)
     Route: 048
     Dates: start: 201103
  2. SUTENT [Suspect]
     Indication: HEPATIC CANCER
  3. LEVOTHYROXINE [Concomitant]
     Dosage: UNK
  4. METOPROLOL [Concomitant]
     Dosage: UNK

REACTIONS (9)
  - Off label use [Unknown]
  - Therapeutic response unexpected [Unknown]
  - Diarrhoea haemorrhagic [Recovered/Resolved]
  - Somnolence [Recovered/Resolved]
  - Blood test abnormal [Unknown]
  - Oral pain [Unknown]
  - Diarrhoea [Unknown]
  - Fatigue [Unknown]
  - Diarrhoea [Recovered/Resolved]
